FAERS Safety Report 20942135 (Version 3)
Quarter: 2022Q3

REPORT INFORMATION
  Report Type: Spontaneous
  Country: JP (occurrence: JP)
  Receive Date: 20220610
  Receipt Date: 20220813
  Transmission Date: 20221026
  Serious: Yes (Hospitalization, Disabling, Other)
  Sender: FDA-Public Use
  Company Number: JP-AMGEN-JPNSP2022089415

PATIENT
  Age: 61 Year
  Sex: Male
  Weight: 54 kg

DRUGS (8)
  1. OTEZLA [Suspect]
     Active Substance: APREMILAST
     Indication: Psoriasis
     Dosage: 30 MILLIGRAM, BID
     Route: 048
     Dates: start: 2018, end: 20220520
  2. OTEZLA [Suspect]
     Active Substance: APREMILAST
     Dosage: 30 MILLIGRAM, BID
     Route: 048
  3. BETAMETHASONE\CALCIPOTRIENE [Concomitant]
     Active Substance: BETAMETHASONE\CALCIPOTRIENE
     Indication: Psoriasis
     Dosage: UNK
     Dates: start: 2000
  4. LOXOPROFEN SODIUM [Concomitant]
     Active Substance: LOXOPROFEN SODIUM
     Indication: Intervertebral disc disorder
     Dosage: 1 DOSAGE FORM, TID
     Dates: start: 20220510, end: 20220520
  5. REBAMIPIDE [Concomitant]
     Active Substance: REBAMIPIDE
     Indication: Intervertebral disc disorder
     Dosage: 1 DOSAGE FORM, TID
     Dates: start: 20220510, end: 20220520
  6. METHYLCOBALAMIN [Concomitant]
     Active Substance: METHYLCOBALAMIN
     Indication: Intervertebral disc disorder
     Dosage: 1 DOSAGE FORM, TID
     Dates: start: 20220510, end: 20220520
  7. PREGABALIN [Concomitant]
     Active Substance: PREGABALIN
     Indication: Intervertebral disc disorder
     Dosage: 50 MILLIGRAM, QD
     Dates: start: 20220519
  8. Neo vitacain [Concomitant]

REACTIONS (3)
  - Pancreatic carcinoma metastatic [Not Recovered/Not Resolved]
  - Diverticular perforation [Recovering/Resolving]
  - Abdominal abscess [Unknown]

NARRATIVE: CASE EVENT DATE: 20220520
